FAERS Safety Report 14312814 (Version 7)
Quarter: 2020Q3

REPORT INFORMATION
  Report Type: Report from Study
  Country: BR (occurrence: BR)
  Receive Date: 20171221
  Receipt Date: 20200719
  Transmission Date: 20201102
  Serious: Yes (Other)
  Sender: FDA-Public Use
  Company Number: PHHY2016BR123971

PATIENT
  Age: 48 Year
  Sex: Female
  Weight: 69 kg

DRUGS (13)
  1. SANDOSTATIN LAR DEPOT [Suspect]
     Active Substance: OCTREOTIDE ACETATE
     Dosage: 40 MG, QMO
     Route: 030
     Dates: start: 201801
  2. PREDNISONE. [Suspect]
     Active Substance: PREDNISONE
     Indication: ACROMEGALY
     Dosage: 1.5 DF, QD
     Route: 048
     Dates: start: 1998
  3. PREMARIN [Concomitant]
     Active Substance: ESTROGENS, CONJUGATED
     Indication: HORMONE REPLACEMENT THERAPY
     Dosage: 1 DF, QD (1? 14)
     Route: 048
  4. SANDOSTATIN LAR DEPOT [Suspect]
     Active Substance: OCTREOTIDE ACETATE
     Dosage: 2 DF, QMO (2 AMPOULES)
     Route: 030
     Dates: start: 201712
  5. CABERGOLINE. [Suspect]
     Active Substance: CABERGOLINE
     Dosage: 2 DF, QW3
     Route: 048
  6. SANDOSTATIN LAR DEPOT [Suspect]
     Active Substance: OCTREOTIDE ACETATE
     Dosage: 40 MG, QMO (2 AMPOULES EVERY 28 DAYS)
     Route: 030
     Dates: start: 20171006
  7. DIPIRONE [Concomitant]
     Active Substance: METAMIZOLE SODIUM
     Indication: PRODUCT USED FOR UNKNOWN INDICATION
     Route: 065
  8. CABERGOLINE. [Suspect]
     Active Substance: CABERGOLINE
     Indication: ACROMEGALY
     Dosage: 2 DF, QW
     Route: 048
  9. SANDOSTATIN LAR DEPOT [Suspect]
     Active Substance: OCTREOTIDE ACETATE
     Dosage: 40 MG, UNK
     Route: 030
     Dates: start: 20130701
  10. SANDOSTATIN LAR DEPOT [Suspect]
     Active Substance: OCTREOTIDE ACETATE
     Dosage: 2.5 MG
     Route: 065
     Dates: start: 20191001
  11. PREDNISONE. [Suspect]
     Active Substance: PREDNISONE
     Indication: ASTHMA
  12. SANDOSTATIN LAR DEPOT [Suspect]
     Active Substance: OCTREOTIDE ACETATE
     Indication: ACROMEGALY
     Dosage: 30 MG, QMO (EVERY 28 DAYS)
     Route: 030
     Dates: start: 1999
  13. PRIMERA [Concomitant]
     Active Substance: UNSPECIFIED INGREDIENT
     Indication: HORMONE REPLACEMENT THERAPY
     Dosage: 1 DF, QD (14 ? 21)
     Route: 048

REACTIONS (39)
  - Diabetes mellitus [Recovering/Resolving]
  - Nephrolithiasis [Unknown]
  - General physical health deterioration [Not Recovered/Not Resolved]
  - Decreased appetite [Unknown]
  - Tooth disorder [Unknown]
  - Body height decreased [Unknown]
  - Blood cholesterol increased [Unknown]
  - Insulin-like growth factor increased [Unknown]
  - Fatigue [Not Recovered/Not Resolved]
  - Dyspnoea [Not Recovered/Not Resolved]
  - Pyrexia [Recovered/Resolved]
  - Pain [Recovered/Resolved]
  - Injection site pain [Unknown]
  - Hypersensitivity [Not Recovered/Not Resolved]
  - Injection site mass [Unknown]
  - Dysphonia [Not Recovered/Not Resolved]
  - Dengue fever [Recovered/Resolved]
  - Pyrexia [Unknown]
  - Pain [Unknown]
  - Dengue fever [Unknown]
  - Influenza [Not Recovered/Not Resolved]
  - Nausea [Not Recovered/Not Resolved]
  - Osteoporosis [Recovered/Resolved]
  - Needle issue [Unknown]
  - Blood prolactin increased [Recovering/Resolving]
  - Malaise [Unknown]
  - Tremor [Recovered/Resolved]
  - Decreased appetite [Recovered/Resolved]
  - Bone pain [Unknown]
  - Nasal congestion [Not Recovered/Not Resolved]
  - Dizziness [Recovered/Resolved]
  - Cholelithiasis [Recovered/Resolved]
  - Hypothyroidism [Unknown]
  - Malaise [Recovered/Resolved]
  - Weight decreased [Not Recovered/Not Resolved]
  - Overweight [Recovered/Resolved]
  - Malaise [Not Recovered/Not Resolved]
  - Cough [Not Recovered/Not Resolved]
  - Incorrect dose administered [Unknown]

NARRATIVE: CASE EVENT DATE: 2016
